FAERS Safety Report 4508252-4 (Version None)
Quarter: 2004Q4

REPORT INFORMATION
  Report Type: 
  Country: None (occurrence: None)
  Receive Date: 20041123
  Receipt Date: 20031203
  Transmission Date: 20050328
  Serious: No
  Sender: FDA-Public Use
  Company Number: US-GLAXOSMITHKLINE-A0441791A

PATIENT
  Age: 54 Year
  Sex: Male

DRUGS (8)
  1. WELLBUTRIN [Suspect]
     Indication: DEPRESSION
     Dosage: 150MG PER DAY
     Route: 048
     Dates: end: 20031124
  2. EFFEXOR XR [Concomitant]
  3. PROVENTIL [Concomitant]
  4. VENTOLIN [Concomitant]
  5. FLOVENT [Concomitant]
  6. ALLEGRA [Concomitant]
  7. IBUPROFEN [Concomitant]
  8. ASPIRIN [Concomitant]

REACTIONS (1)
  - ASTHMA [None]
